FAERS Safety Report 6927616-2 (Version None)
Quarter: 2010Q3

REPORT INFORMATION
  Report Type: 
  Country: None (occurrence: None)
  Receive Date: 20100817
  Receipt Date: 20100803
  Transmission Date: 20110219
  Serious: Yes (Other)
  Sender: FDA-Public Use
  Company Number: PHHY2010FR39879

PATIENT
  Age: 47 Year
  Sex: Female
  Weight: 65 kg

DRUGS (4)
  1. RASILEZ [Suspect]
     Indication: HYPERTENSION
     Dosage: 150 MG
     Route: 048
     Dates: start: 20100521, end: 20100526
  2. IBUPROFEN [Concomitant]
     Indication: NECK PAIN
     Dosage: 400 MG, TID
  3. EFFERALGAN [Concomitant]
     Indication: NECK PAIN
     Dosage: 4 DF DAILY
  4. MYOLASTAN [Concomitant]
     Indication: NECK PAIN
     Dosage: 50 MG DAILY

REACTIONS (4)
  - BLOOD PRESSURE INCREASED [None]
  - HEADACHE [None]
  - RASH [None]
  - VOMITING [None]
